FAERS Safety Report 9138327 (Version 1)
Quarter: 2013Q1

REPORT INFORMATION
  Report Type: Spontaneous
  Country: GB (occurrence: None)
  Receive Date: 20130228
  Receipt Date: 20130228
  Transmission Date: 20140127
  Serious: Yes (Death)
  Sender: FDA-Public Use
  Company Number: 1607642

PATIENT
  Age: 73 Year
  Sex: Female
  Weight: 38.1 kg

DRUGS (6)
  1. ATRACURIUM BESILATE [Suspect]
     Indication: ANAESTHESIA
     Dosage: (NOT OTHERWISE SPECIFIED))
     Route: 042
     Dates: start: 20130128, end: 20130128
  2. ONDANSETRON [Concomitant]
  3. PROPRANOLOL [Concomitant]
  4. FENTANYL [Concomitant]
  5. DEXAMETHASONE [Concomitant]
  6. PROPOFOL [Concomitant]

REACTIONS (1)
  - Circulatory collapse [None]
